FAERS Safety Report 16025711 (Version 1)
Quarter: 2019Q1

REPORT INFORMATION
  Report Type: Spontaneous
  Country: DE (occurrence: DE)
  Receive Date: 20190302
  Receipt Date: 20190302
  Transmission Date: 20190418
  Serious: Yes (Death)
  Sender: FDA-Public Use
  Company Number: DE-ACCORD-110136

PATIENT
  Age: 49 Year
  Sex: Female
  Weight: 62 kg

DRUGS (6)
  1. TOPIRAMATE. [Concomitant]
     Active Substance: TOPIRAMATE
     Indication: EPILEPSY
     Dosage: DAILY DOSE: 200 MG MILLGRAM(S) EVERY DAYS
     Route: 048
     Dates: start: 201711
  2. TAVOR [Concomitant]
     Indication: SCHIZOPHRENIA
     Dosage: DAILY DOSE: 1 MG MILLGRAM(S) EVERY DAYS
     Route: 048
     Dates: start: 201711
  3. CLOZAPINE. [Suspect]
     Active Substance: CLOZAPINE
     Indication: SCHIZOPHRENIA
     Dosage: DAILY DOSE: 750 MG MILLGRAM(S) EVERY DAYS
     Route: 048
     Dates: start: 201802
  4. DULOXETINE. [Interacting]
     Active Substance: DULOXETINE
     Indication: SCHIZOPHRENIA
     Dosage: DAILY DOSE: 60 MG MILLGRAM(S) EVERY DAYS
     Route: 048
     Dates: start: 201711
  5. KOMBIGLYCE [Interacting]
     Active Substance: METFORMIN HYDROCHLORIDE\SAXAGLIPTIN HYDROCHLORIDE
     Indication: TYPE 2 DIABETES MELLITUS
     Dosage: STRENGTH 2.5 MG/1000 MG, DAILY DOSE: 2 DF DOSAGE FORM EVERY DAYS
     Route: 048
     Dates: start: 201711
  6. FLUVOXAMINE [Interacting]
     Active Substance: FLUVOXAMINE
     Indication: SCHIZOPHRENIA
     Dosage: DAILY DOSE: 25 MG MILLGRAM(S) EVERY DAYS
     Route: 048
     Dates: start: 20180619

REACTIONS (6)
  - Acute kidney injury [Fatal]
  - Shock [Fatal]
  - Hyperkalaemia [Fatal]
  - Lactic acidosis [Fatal]
  - Multiple organ dysfunction syndrome [Fatal]
  - Drug interaction [Fatal]

NARRATIVE: CASE EVENT DATE: 20180825
